FAERS Safety Report 23314530 (Version 4)
Quarter: 2024Q2

REPORT INFORMATION
  Report Type: Spontaneous
  Country: PK (occurrence: PK)
  Receive Date: 20231219
  Receipt Date: 20240618
  Transmission Date: 20240715
  Serious: Yes (Hospitalization, Other)
  Sender: FDA-Public Use
  Company Number: PK-PFIZER INC-PV202300138999

PATIENT
  Age: 22 Year
  Sex: Male
  Weight: 51 kg

DRUGS (5)
  1. IXIFI [Suspect]
     Active Substance: INFLIXIMAB-QBTX
     Indication: Colitis ulcerative
     Dosage: 300 MG (5MG/KG), 1ST DOSE
     Route: 042
     Dates: start: 20230816
  2. IXIFI [Suspect]
     Active Substance: INFLIXIMAB-QBTX
     Indication: Colitis
     Dosage: UNK
     Route: 042
     Dates: start: 2023
  3. IXIFI [Suspect]
     Active Substance: INFLIXIMAB-QBTX
     Dosage: UNK
     Route: 042
     Dates: start: 2023
  4. IMURAN [Concomitant]
     Active Substance: AZATHIOPRINE
     Dosage: 50 MG, 1X/DAY, AFTER BREAKFAST
  5. SULFASALAZINE [Concomitant]
     Active Substance: SULFASALAZINE
     Dosage: 500 MG, 2X/DAY, AFTER LUNCH 2+2

REACTIONS (8)
  - C-reactive protein increased [Unknown]
  - Frequent bowel movements [Unknown]
  - Rectal haemorrhage [Unknown]
  - Anaemia [Unknown]
  - Blood pressure decreased [Unknown]
  - Heart rate increased [Unknown]
  - Off label use [Unknown]
  - Off label use [Unknown]

NARRATIVE: CASE EVENT DATE: 20240213
